FAERS Safety Report 16636059 (Version 2)
Quarter: 2025Q3

REPORT INFORMATION
  Report Type: Spontaneous
  Country: US (occurrence: US)
  Receive Date: 20190726
  Receipt Date: 20250712
  Transmission Date: 20251020
  Serious: Yes (Hospitalization, Other)
  Sender: AUROBINDO
  Company Number: US-MYLANLABS-2019M1068572

PATIENT
  Age: 56 Year
  Sex: Female

DRUGS (8)
  1. KETOCONAZOLE [Suspect]
     Active Substance: KETOCONAZOLE
     Indication: Cushing^s syndrome
     Route: 065
  2. CARBOPLATIN [Suspect]
     Active Substance: CARBOPLATIN
     Indication: Endometrial adenocarcinoma
     Route: 065
  3. ALLOPURINOL [Suspect]
     Active Substance: ALLOPURINOL
     Indication: Tumour lysis syndrome
     Route: 065
  4. PACLITAXEL [Suspect]
     Active Substance: PACLITAXEL
     Indication: Endometrial adenocarcinoma
     Dosage: 100 MILLIGRAM/SQ. METER, QW
     Route: 065
  5. CALCITONIN [Concomitant]
     Active Substance: CALCITONIN
     Indication: Paraneoplastic syndrome
     Route: 065
  6. CALCITONIN [Concomitant]
     Active Substance: CALCITONIN
     Indication: Hypercalcaemia of malignancy
  7. ERGOCALCIFEROL [Concomitant]
     Active Substance: ERGOCALCIFEROL
     Indication: Paraneoplastic syndrome
     Route: 065
  8. ERGOCALCIFEROL [Concomitant]
     Active Substance: ERGOCALCIFEROL
     Indication: Hypercalcaemia of malignancy

REACTIONS (2)
  - Cholestatic liver injury [Unknown]
  - Toxic epidermal necrolysis [Unknown]
